FAERS Safety Report 10054843 (Version 1)
Quarter: 2014Q2

REPORT INFORMATION
  Report Type: Spontaneous
  Country: US (occurrence: US)
  Receive Date: 20140402
  Receipt Date: 20140402
  Transmission Date: 20141212
  Serious: Yes (Other)
  Sender: FDA-Public Use
  Company Number: US-AMGEN-USASP2014022571

PATIENT
  Age: 52 Year
  Sex: Female

DRUGS (2)
  1. ENBREL [Suspect]
     Indication: RHEUMATOID ARTHRITIS
     Dosage: 50 MG, QWK
     Route: 065
     Dates: start: 20080125
  2. METHOTREXATE [Concomitant]
     Dosage: 20 MG, UNK
     Route: 048

REACTIONS (5)
  - Lower respiratory tract infection [Recovered/Resolved]
  - Rhinorrhoea [Recovered/Resolved]
  - Cough [Recovered/Resolved]
  - Fatigue [Recovered/Resolved]
  - Upper respiratory tract infection [Recovered/Resolved]
